FAERS Safety Report 9729502 (Version 2)
Quarter: 2015Q3

REPORT INFORMATION
  Report Type: Spontaneous
  Country: US (occurrence: US)
  Receive Date: 20131204
  Receipt Date: 20150804
  Transmission Date: 20151125
  Serious: No
  Sender: FDA-Public Use
  Company Number: US-GILEAD-2009-0022029

PATIENT
  Age: 55 Year
  Sex: Male
  Weight: 100.24 kg

DRUGS (18)
  1. VENTAVIS [Concomitant]
     Active Substance: ILOPROST
     Indication: PULMONARY ARTERIAL HYPERTENSION
     Dates: start: 20090417
  2. METFORMIN HCL [Concomitant]
     Active Substance: METFORMIN HYDROCHLORIDE
  3. BENTYL [Concomitant]
     Active Substance: DICYCLOMINE HYDROCHLORIDE
  4. PLAVIX [Concomitant]
     Active Substance: CLOPIDOGREL BISULFATE
  5. ACIPHEX [Concomitant]
     Active Substance: RABEPRAZOLE SODIUM
  6. ADVAIR 250-50 DISKUS [Concomitant]
  7. LETAIRIS [Suspect]
     Active Substance: AMBRISENTAN
     Indication: PULMONARY ARTERIAL HYPERTENSION
     Route: 048
     Dates: start: 20081126
  8. LASIX [Concomitant]
     Active Substance: FUROSEMIDE
  9. TOPROL XL [Concomitant]
     Active Substance: METOPROLOL SUCCINATE
  10. CLONAZEPAM. [Concomitant]
     Active Substance: CLONAZEPAM
  11. REVATIO [Concomitant]
     Active Substance: SILDENAFIL CITRATE
  12. PRAVASTATIN SODIUM. [Concomitant]
     Active Substance: PRAVASTATIN SODIUM
  13. OXYGEN. [Concomitant]
     Active Substance: OXYGEN
  14. VENTOLIN [Concomitant]
     Active Substance: ALBUTEROL SULFATE
  15. NEURONTIN [Concomitant]
     Active Substance: GABAPENTIN
  16. MIRTAZAPINE. [Concomitant]
     Active Substance: MIRTAZAPINE
  17. LANTUS [Concomitant]
     Active Substance: INSULIN GLARGINE
  18. NOVOLOG [Concomitant]
     Active Substance: INSULIN ASPART

REACTIONS (1)
  - Oedema peripheral [Unknown]
